FAERS Safety Report 13502771 (Version 3)
Quarter: 2017Q4

REPORT INFORMATION
  Report Type: Report from Study
  Country: PL (occurrence: PL)
  Receive Date: 20170502
  Receipt Date: 20171225
  Transmission Date: 20180320
  Serious: Yes (Other)
  Sender: FDA-Public Use
  Company Number: PL-ROCHE-1890583

PATIENT

DRUGS (5)
  1. GP2013 (RITUXIMAB BIOSIMILAR) [Suspect]
     Active Substance: INVESTIGATIONAL BIOSIMILARS
     Indication: B-CELL LYMPHOMA
     Route: 065
  2. VINCRISTINE [Suspect]
     Active Substance: VINCRISTINE
     Indication: B-CELL LYMPHOMA
     Route: 065
  3. PREDNISONE. [Suspect]
     Active Substance: PREDNISONE
     Indication: B-CELL LYMPHOMA
     Route: 065
  4. CYCLOPHOSPHAMIDE. [Suspect]
     Active Substance: CYCLOPHOSPHAMIDE
     Indication: B-CELL LYMPHOMA
     Route: 065
  5. RITUXIMAB. [Suspect]
     Active Substance: RITUXIMAB
     Indication: B-CELL LYMPHOMA
     Route: 065

REACTIONS (39)
  - Sepsis [Unknown]
  - Paraesthesia [Unknown]
  - Pyrexia [Unknown]
  - Cardiac disorder [Unknown]
  - Immune system disorder [Unknown]
  - Urinary tract disorder [Unknown]
  - Herpes zoster [Unknown]
  - Alanine aminotransferase increased [Unknown]
  - Gamma-glutamyltransferase increased [Unknown]
  - Dyspnoea [Unknown]
  - Back pain [Unknown]
  - Lymphopenia [Unknown]
  - Lymphocyte count increased [Unknown]
  - Febrile neutropenia [Unknown]
  - Fatigue [Unknown]
  - Infusion related reaction [Unknown]
  - Cholelithiasis [Unknown]
  - Hyperglycaemia [Unknown]
  - Renal disorder [Unknown]
  - Thrombocytopenia [Unknown]
  - Neutropenia [Unknown]
  - Neuropathy peripheral [Unknown]
  - Hypertension [Unknown]
  - Mental disorder [Unknown]
  - Neutrophil count decreased [Unknown]
  - Leukopenia [Unknown]
  - Septic shock [Unknown]
  - Urinary tract infection [Unknown]
  - Hyponatraemia [Unknown]
  - Skin disorder [Unknown]
  - Pulmonary embolism [Unknown]
  - Constipation [Unknown]
  - Hypokalaemia [Unknown]
  - Pneumonia [Unknown]
  - White blood cell count increased [Unknown]
  - Abdominal pain [Unknown]
  - Headache [Unknown]
  - Bronchitis [Unknown]
  - Anaemia [Unknown]
